FAERS Safety Report 21789167 (Version 1)
Quarter: 2022Q4

REPORT INFORMATION
  Report Type: Spontaneous
  Country: US (occurrence: None)
  Receive Date: 20221227
  Receipt Date: 20221227
  Transmission Date: 20230112
  Serious: Yes (Other)
  Sender: FDA-Public Use
  Company Number: None

PATIENT
  Age: 66 Year
  Sex: Female
  Weight: 51.75 kg

DRUGS (5)
  1. ALENDRONATE SODIUM [Suspect]
     Active Substance: ALENDRONATE SODIUM
     Indication: Osteopenia
     Dosage: FREQUENCY : WEEKLY;?
     Route: 048
     Dates: start: 20221119, end: 20221119
  2. AMLODIPINE [Concomitant]
     Active Substance: AMLODIPINE BESYLATE
  3. VITAMIN D [Concomitant]
     Active Substance: VITAMIN D NOS
  4. Bcomplex [Concomitant]
  5. CALCIUM CITRATE [Concomitant]
     Active Substance: CALCIUM CITRATE

REACTIONS (16)
  - Arthralgia [None]
  - Neck pain [None]
  - Back pain [None]
  - Myalgia [None]
  - Fatigue [None]
  - Nausea [None]
  - Decreased appetite [None]
  - Eye inflammation [None]
  - Erythema of eyelid [None]
  - Retching [None]
  - Pyrexia [None]
  - Diarrhoea [None]
  - Joint swelling [None]
  - Erythema [None]
  - Asthenia [None]
  - Pruritus [None]

NARRATIVE: CASE EVENT DATE: 20221122
